FAERS Safety Report 5491908-7 (Version None)
Quarter: 2007Q4

REPORT INFORMATION
  Report Type: 
  Country: None (occurrence: None)
  Receive Date: 20071018
  Receipt Date: 20071018
  Transmission Date: 20080405
  Serious: Yes (Hospitalization)
  Sender: FDA-Public Use
  Company Number: None

PATIENT
  Age: 67 Year
  Sex: Male
  Weight: 121.1 kg

DRUGS (2)
  1. CUBICIN [Suspect]
     Indication: HIP ARTHROPLASTY
     Dosage: IV DRIP
     Route: 041
     Dates: start: 20070922, end: 20071006
  2. CUBICIN [Suspect]
     Indication: POST PROCEDURAL INFECTION
     Dosage: IV DRIP
     Route: 041
     Dates: start: 20070922, end: 20071006

REACTIONS (1)
  - INTERSTITIAL LUNG DISEASE [None]
